FAERS Safety Report 6504167-0 (Version None)
Quarter: 2009Q4

REPORT INFORMATION
  Report Type: 
  Country: None (occurrence: None)
  Receive Date: 20091217
  Receipt Date: 20091207
  Transmission Date: 20100525
  Serious: Yes (Life-Threatening, Hospitalization)
  Sender: FDA-Public Use
  Company Number: BE-SANOFI-AVENTIS-2009SA007747

PATIENT
  Age: 62 Year

DRUGS (6)
  1. OXALIPLATIN [Suspect]
     Indication: COLON CANCER
     Route: 042
     Dates: start: 20080402, end: 20080513
  2. OXALIPLATIN [Suspect]
     Route: 042
     Dates: start: 20080527
  3. FLUOROURACIL [Suspect]
     Indication: COLON CANCER
     Route: 042
     Dates: start: 20080402, end: 20080513
  4. FLUOROURACIL [Suspect]
     Route: 042
     Dates: start: 20080527
  5. FOLINIC ACID [Suspect]
     Indication: COLON CANCER
     Route: 042
     Dates: start: 20080402, end: 20080513
  6. FOLINIC ACID [Suspect]
     Route: 042
     Dates: start: 20080527

REACTIONS (3)
  - INFECTION [None]
  - NEUTROPENIA [None]
  - SEPTIC SHOCK [None]
